FAERS Safety Report 6298680-1 (Version None)
Quarter: 2009Q3

REPORT INFORMATION
  Report Type: 
  Country: None (occurrence: None)
  Receive Date: 20090805
  Receipt Date: 20090731
  Transmission Date: 20100115
  Serious: Yes (Hospitalization)
  Sender: FDA-Public Use
  Company Number: US-B.I. PHARMACEUTICALS,INC./RIDGEFIELD-2009-BP-07761BP

PATIENT
  Sex: Male

DRUGS (13)
  1. MIRAPEX [Suspect]
     Indication: RESTLESS LEGS SYNDROME
     Dosage: 3 MG
     Route: 048
     Dates: start: 20090201, end: 20090616
  2. DILTIAZEM [Concomitant]
     Indication: HYPERTENSION
     Dosage: 240 MG
  3. NITROGLYCERIN [Concomitant]
     Indication: CORONARY ARTERY DISEASE
  4. POTASSIUM CHLORIDE [Concomitant]
     Indication: CORONARY ARTERY DISEASE
     Dosage: 20 MG
  5. LASIX [Concomitant]
     Indication: CORONARY ARTERY DISEASE
     Dosage: 40 MG
  6. WARFARIN SODIUM [Concomitant]
     Indication: CARDIAC OPERATION
  7. ENALAPRIL MALEATE [Concomitant]
     Indication: HYPERTENSION
     Dosage: 20 MG
  8. DIGOXIN [Concomitant]
     Indication: CORONARY ARTERY DISEASE
     Dosage: 0.25 MG
  9. CITALOPRAM [Concomitant]
     Indication: DEPRESSION
  10. NITRO SLO CAPS [Concomitant]
     Dosage: 13 MG
  11. LEXAPRO [Concomitant]
     Dosage: 10 MG
  12. CARDIZEM CD [Concomitant]
     Dosage: 240 MG
  13. COUMADIN [Concomitant]
     Dosage: 2 MG

REACTIONS (4)
  - DIZZINESS [None]
  - NAUSEA [None]
  - NERVOUSNESS [None]
  - PNEUMONIA [None]
